FAERS Safety Report 11774002 (Version 1)
Quarter: 2015Q4

REPORT INFORMATION
  Report Type: Spontaneous
  Country: US (occurrence: US)
  Receive Date: 20151124
  Receipt Date: 20151124
  Transmission Date: 20160304
  Serious: No
  Sender: FDA-Public Use
  Company Number: US-PERNIX THERAPEUTICS-2015PT000183

PATIENT

DRUGS (8)
  1. OMEGA 3 WITH VITAMINS [Concomitant]
     Dosage: UNK
  2. ZOHYDRO [Suspect]
     Active Substance: HYDROCODONE BITARTRATE
     Dosage: 30 MG, EVERY 12 HOURS
     Route: 048
     Dates: start: 2015, end: 2015
  3. LASIX [Concomitant]
     Active Substance: FUROSEMIDE
     Dosage: UNK
  4. ZOHYDRO [Suspect]
     Active Substance: HYDROCODONE BITARTRATE
     Dosage: 20 MG, EVERY 12 HOURS
     Route: 048
     Dates: start: 2015
  5. POTASSIUM [Concomitant]
     Active Substance: POTASSIUM
     Dosage: UNK
  6. CLONAZEPAM. [Concomitant]
     Active Substance: CLONAZEPAM
     Dosage: UNK
  7. ZOHYDRO [Suspect]
     Active Substance: HYDROCODONE BITARTRATE
     Indication: PAIN
     Dosage: 15 MG, EVERY 12 HOURS
     Route: 048
     Dates: start: 2015, end: 2015
  8. ASPIRIN                            /00002701/ [Concomitant]
     Active Substance: ASPIRIN
     Dosage: UNK

REACTIONS (4)
  - Drug ineffective [Unknown]
  - Balance disorder [None]
  - Headache [Unknown]
  - Therapeutic response decreased [None]

NARRATIVE: CASE EVENT DATE: 2015
